FAERS Safety Report 24537375 (Version 5)
Quarter: 2025Q4

REPORT INFORMATION
  Report Type: Report from Study
  Country: US (occurrence: None)
  Receive Date: 20241022
  Receipt Date: 20251203
  Transmission Date: 20260117
  Serious: Yes (Other)
  Sender: UCB
  Company Number: US-UCBSA-2024053321

PATIENT
  Age: 2 Year
  Weight: 10 kg

DRUGS (3)
  1. FENFLURAMINE [Suspect]
     Active Substance: FENFLURAMINE
     Indication: Lennox-Gastaut syndrome
     Dosage: 6.6MG PER DAY
  2. FENFLURAMINE [Suspect]
     Active Substance: FENFLURAMINE
     Dosage: 1.4 MILLILITER, 2X/DAY (BID)
  3. FENFLURAMINE [Suspect]
     Active Substance: FENFLURAMINE
     Dosage: 7.92 MILLIGRAM PER DAY

REACTIONS (2)
  - Tricuspid valve incompetence [Unknown]
  - Seizure [Not Recovered/Not Resolved]
